FAERS Safety Report 20653334 (Version 2)
Quarter: 2022Q2

REPORT INFORMATION
  Report Type: Spontaneous
  Country: DE (occurrence: DE)
  Receive Date: 20220330
  Receipt Date: 20220401
  Transmission Date: 20220721
  Serious: No
  Sender: FDA-Public Use
  Company Number: DE-ORGANON-O2203DEU002678

PATIENT
  Age: 87 Year
  Sex: Male

DRUGS (1)
  1. NASONEX [Suspect]
     Active Substance: MOMETASONE FUROATE
     Dosage: ONCE A DAY, ON THREE CONSECUTIVE DAYS
     Dates: start: 20220320, end: 20220323

REACTIONS (2)
  - Nasal obstruction [Recovered/Resolved]
  - Epistaxis [Recovered/Resolved]

NARRATIVE: CASE EVENT DATE: 20220301
